FAERS Safety Report 11632428 (Version 1)
Quarter: 2015Q4

REPORT INFORMATION
  Report Type: Spontaneous
  Country: US (occurrence: None)
  Receive Date: 20151014
  Receipt Date: 20151014
  Transmission Date: 20160304
  Serious: Yes (Hospitalization)
  Sender: FDA-Public Use
  Company Number: None

PATIENT
  Age: 53 Year
  Sex: Male
  Weight: 109.6 kg

DRUGS (2)
  1. GABAPENTIN. [Suspect]
     Active Substance: GABAPENTIN
     Indication: NEUROPATHY PERIPHERAL
     Route: 048
     Dates: start: 20150522, end: 20150807
  2. METHOCARBAMOL. [Suspect]
     Active Substance: METHOCARBAMOL
     Indication: MUSCLE SPASMS
     Route: 048
     Dates: start: 20150707, end: 20150807

REACTIONS (3)
  - Dizziness [None]
  - Fall [None]
  - Asthenia [None]

NARRATIVE: CASE EVENT DATE: 20150806
